FAERS Safety Report 4832451-5 (Version None)
Quarter: 2005Q4

REPORT INFORMATION
  Report Type: 
  Country: None (occurrence: None)
  Receive Date: 20051121
  Receipt Date: 20051108
  Transmission Date: 20060501
  Serious: Yes (Hospitalization)
  Sender: FDA-Public Use
  Company Number: FR-AVENTIS-200513682FR

PATIENT
  Age: 69 Year
  Sex: Male
  Weight: 66 kg

DRUGS (13)
  1. LASIX [Suspect]
     Route: 048
     Dates: start: 20050721, end: 20050812
  2. OFLOCET [Suspect]
     Route: 048
     Dates: start: 20050804, end: 20050812
  3. TAXOL [Suspect]
     Route: 042
     Dates: start: 20050711, end: 20050810
  4. SKENAN LP [Suspect]
     Route: 048
     Dates: start: 20050721, end: 20050812
  5. ACETAMINOPHEN [Suspect]
     Route: 048
     Dates: start: 20050804, end: 20050812
  6. MORPHINE SULFATE [Suspect]
     Route: 048
     Dates: start: 20050721, end: 20050812
  7. SOLU-MEDROL [Concomitant]
     Route: 048
  8. FORLAX [Concomitant]
     Route: 048
  9. LANSOYL [Concomitant]
     Route: 048
  10. NEXIUM [Concomitant]
     Route: 048
  11. NEURONTIN [Concomitant]
     Route: 048
  12. DICYNONE [Concomitant]
  13. EXACYL [Concomitant]

REACTIONS (12)
  - BLOOD POTASSIUM INCREASED [None]
  - COMA [None]
  - CYTOLYTIC HEPATITIS [None]
  - DEHYDRATION [None]
  - DIALYSIS [None]
  - HEPATOCELLULAR DAMAGE [None]
  - LUNG DISORDER [None]
  - METASTASIS [None]
  - RENAL FAILURE ACUTE [None]
  - RENAL HAEMORRHAGE [None]
  - SEPSIS [None]
  - SHOCK [None]
